FAERS Safety Report 13895132 (Version 2)
Quarter: 2017Q3

REPORT INFORMATION
  Report Type: Report from Study
  Country: FR (occurrence: FR)
  Receive Date: 20170823
  Receipt Date: 20170911
  Transmission Date: 20171127
  Serious: Yes (Hospitalization, Other)
  Sender: FDA-Public Use
  Company Number: FR-ROCHE-1643271

PATIENT
  Age: 83 Year
  Sex: Female
  Weight: 60 kg

DRUGS (2)
  1. VEMURAFENIB. [Suspect]
     Active Substance: VEMURAFENIB
     Indication: NEOPLASM MALIGNANT
     Dosage: DATE OF MOST RECENT DOSE OF VEMURAFENIB PRIOR TO SAE: 05/OCT/2015
     Route: 048
     Dates: start: 20150924
  2. VEMURAFENIB. [Suspect]
     Active Substance: VEMURAFENIB
     Dosage: LAST DOSE PRIOR TO GENERAL PHYSICAL HEALTH DETERIORATION (CUMULATIVE DOSE SINCE THE 1 ST ADMINISTRAT
     Route: 048
     Dates: start: 20151108

REACTIONS (3)
  - Asthenia [Recovered/Resolved]
  - General physical health deterioration [Recovered/Resolved with Sequelae]
  - Decreased appetite [Recovered/Resolved]

NARRATIVE: CASE EVENT DATE: 20151005
